FAERS Safety Report 21410139 (Version 1)
Quarter: 2022Q4

REPORT INFORMATION
  Report Type: Spontaneous
  Country: US (occurrence: US)
  Receive Date: 20221005
  Receipt Date: 20221005
  Transmission Date: 20230112
  Serious: No
  Sender: FDA-Public Use
  Company Number: US-ALLERGAN-2221436US

PATIENT
  Age: 59 Year
  Sex: Female

DRUGS (3)
  1. UBRELVY [Suspect]
     Active Substance: UBROGEPANT
     Indication: Product used for unknown indication
     Dosage: UNK
     Route: 048
     Dates: start: 20220609
  2. CLARITIN [Concomitant]
     Active Substance: LORATADINE
     Indication: Hypersensitivity
     Dosage: 10 MG, QD
     Route: 048
     Dates: start: 2004
  3. IMITREX [Concomitant]
     Active Substance: SUMATRIPTAN SUCCINATE
     Indication: Migraine
     Dosage: 50 MG, BI-WEEKLY
     Route: 048

REACTIONS (2)
  - Sinusitis [Recovered/Resolved]
  - Headache [Recovered/Resolved]

NARRATIVE: CASE EVENT DATE: 20220617
